FAERS Safety Report 5606255-X (Version None)
Quarter: 2008Q1

REPORT INFORMATION
  Report Type: 
  Country: None (occurrence: None)
  Receive Date: 20080129
  Receipt Date: 20070323
  Transmission Date: 20080703
  Serious: No
  Sender: FDA-Public Use
  Company Number: A0644715A

PATIENT
  Sex: Female

DRUGS (2)
  1. WELLBUTRIN XL [Suspect]
     Indication: DEPRESSION
     Route: 065
  2. ANTIHISTAMINE [Concomitant]

REACTIONS (4)
  - DRUG INEFFECTIVE [None]
  - DRUG INTERACTION [None]
  - INFLUENZA [None]
  - MALAISE [None]
